FAERS Safety Report 8165031-7 (Version None)
Quarter: 2012Q1

REPORT INFORMATION
  Report Type: 
  Country: None (occurrence: None)
  Receive Date: 20120227
  Receipt Date: 20120215
  Transmission Date: 20120608
  Serious: No
  Sender: FDA-Public Use
  Company Number: US-BIOGENIDEC-2012BI006166

PATIENT
  Age: 51 Year
  Sex: Female

DRUGS (2)
  1. PROVIGIL [Concomitant]
     Indication: ASTHENIA
  2. AVONEX [Suspect]
     Indication: MULTIPLE SCLEROSIS
     Route: 030
     Dates: start: 20020701, end: 20110101

REACTIONS (2)
  - MENTAL IMPAIRMENT [None]
  - AMNESIA [None]
